FAERS Safety Report 8826508 (Version 2)
Quarter: 2012Q4

REPORT INFORMATION
  Report Type: 
  Country: BR (occurrence: BR)
  Receive Date: 20121005
  Receipt Date: 20121010
  Transmission Date: 20130627
  Serious: Yes (Other)
  Sender: FDA-Public Use
  Company Number: BR-PFIZER INC-2012242975

PATIENT
  Sex: Female
  Weight: 70 kg

DRUGS (11)
  1. FRONTAL [Suspect]
     Indication: ANXIETY
     Dosage: 0.5 mg (one tablet), 2x/day
     Route: 048
     Dates: start: 2002, end: 2007
  2. FRONTAL [Suspect]
     Dosage: UNK
     Route: 048
  3. FRONTAL XR [Suspect]
  4. FOLIC ACID [Concomitant]
     Dosage: Once daily
  5. ATENOLOL [Concomitant]
     Indication: HYPERTENSION
     Dosage: 1 tablet in the afternoon
  6. BENICAR [Concomitant]
     Indication: HYPERTENSION
     Dosage: 1 DF, 1x/day in the morning
  7. CLOPIDOGREL BISULFATE [Concomitant]
     Indication: ANTIPLATELET THERAPY
     Dosage: 1 DF, 1x/day in the afternoon
  8. CALCIUM CARBONATE/COLECALCIFEROL [Concomitant]
     Dosage: UNK
  9. CITALOPRAM [Concomitant]
     Indication: ANXIETY
     Dosage: 1 DF, 2x/day, in the morning and afternoon
  10. DIOSMIN [Concomitant]
     Indication: THROMBOSIS
     Dosage: 1 DF, 2x/day, in the morning and the afternoon
  11. ROSUVASTATIN CALCIUM [Concomitant]
     Dosage: 1 DF, 1x/day after dinner

REACTIONS (8)
  - Gastrointestinal neoplasm [Unknown]
  - Venous occlusion [Unknown]
  - Dysphonia [Unknown]
  - Speech disorder [Unknown]
  - Asthenia [Unknown]
  - Feeling abnormal [Unknown]
  - Insomnia [Unknown]
  - Amnesia [Unknown]
